FAERS Safety Report 18422395 (Version 5)
Quarter: 2021Q1

REPORT INFORMATION
  Report Type: Report from Study
  Country: US (occurrence: US)
  Receive Date: 20201023
  Receipt Date: 20210216
  Transmission Date: 20210419
  Serious: No
  Sender: FDA-Public Use
  Company Number: NVSC2020US284734

PATIENT
  Sex: Female

DRUGS (1)
  1. ENTRESTO [Suspect]
     Active Substance: SACUBITRIL\VALSARTAN
     Indication: PRODUCT USED FOR UNKNOWN INDICATION
     Dosage: 100 MG, BID (49/51 MG)
     Route: 048
     Dates: start: 20200714

REACTIONS (5)
  - Micturition frequency decreased [Unknown]
  - Nasopharyngitis [Unknown]
  - Fluid retention [Unknown]
  - Dyspnoea [Recovering/Resolving]
  - Stress [Unknown]
